FAERS Safety Report 6649585-5 (Version None)
Quarter: 2010Q1

REPORT INFORMATION
  Report Type: 
  Country: None (occurrence: None)
  Receive Date: 20100324
  Receipt Date: 20100324
  Transmission Date: 20100710
  Serious: No
  Sender: FDA-Public Use
  Company Number: None

PATIENT
  Age: 42 Year
  Sex: Male
  Weight: 118.8424 kg

DRUGS (16)
  1. ZOLOFT [Suspect]
     Indication: OBSESSIVE-COMPULSIVE DISORDER
     Dosage: 50 MG ONCE A DAY PO
     Route: 048
  2. XANAX [Suspect]
     Indication: ANXIETY DISORDER
     Dosage: 05 MG BID PO
     Route: 048
  3. TCS?S [Concomitant]
  4. KLONOPIN [Concomitant]
  5. LEXAPRO [Concomitant]
  6. ATIVAN [Concomitant]
  7. WELLBUTRIN [Concomitant]
  8. LUVOX [Concomitant]
  9. GABRIEL [Concomitant]
  10. PROZAC [Concomitant]
  11. TRAZODONE [Concomitant]
  12. REMERON [Concomitant]
  13. PAXIL [Concomitant]
  14. DEPLIN [Concomitant]
  15. ZOLOFT [Concomitant]
  16. SEROQUEL [Concomitant]

REACTIONS (11)
  - ANXIETY [None]
  - DEATH OF RELATIVE [None]
  - FEELING ABNORMAL [None]
  - NAUSEA [None]
  - PRODUCT SUBSTITUTION ISSUE [None]
  - PYREXIA [None]
  - SUICIDAL IDEATION [None]
  - TACHYPHRENIA [None]
  - TINNITUS [None]
  - TREATMENT FAILURE [None]
  - VOMITING [None]
